FAERS Safety Report 8545838-4 (Version None)
Quarter: 2012Q3

REPORT INFORMATION
  Report Type: 
  Country: None (occurrence: None)
  Receive Date: 20120727
  Receipt Date: 20111111
  Transmission Date: 20120928
  Serious: No
  Sender: FDA-Public Use
  Company Number: US-ASTRAZENECA-2011SE68698

PATIENT
  Age: 29 Year
  Sex: Female
  Weight: 78 kg

DRUGS (9)
  1. LITHIUM CARBONATE [Concomitant]
     Indication: DEPRESSION
  2. SEROQUEL [Suspect]
     Indication: INSOMNIA
     Route: 048
     Dates: start: 20050101
  3. LITHIUM CARBONATE [Concomitant]
     Indication: POST-TRAUMATIC STRESS DISORDER
  4. BUSPAR [Concomitant]
     Indication: BIPOLAR DISORDER
  5. SEROQUEL [Suspect]
     Indication: BIPOLAR DISORDER
     Route: 048
     Dates: start: 20050101
  6. LITHIUM CARBONATE [Concomitant]
     Indication: BORDERLINE PERSONALITY DISORDER
  7. LITHIUM CARBONATE [Concomitant]
     Indication: AGGRESSION
  8. LITHIUM CARBONATE [Concomitant]
     Indication: ANXIETY
  9. LITHIUM CARBONATE [Concomitant]
     Indication: BIPOLAR DISORDER

REACTIONS (8)
  - INSOMNIA [None]
  - WITHDRAWAL SYNDROME [None]
  - MALAISE [None]
  - FEELING OF BODY TEMPERATURE CHANGE [None]
  - OFF LABEL USE [None]
  - DRUG DOSE OMISSION [None]
  - VOMITING [None]
  - PAIN [None]
